FAERS Safety Report 9409500 (Version 3)
Quarter: 2019Q1

REPORT INFORMATION
  Report Type: Spontaneous
  Country: US (occurrence: US)
  Receive Date: 20130719
  Receipt Date: 20190320
  Transmission Date: 20190418
  Serious: Yes (Other)
  Sender: FDA-Public Use
  Company Number: US-PFIZER INC-2013207767

PATIENT
  Age: 43 Year
  Sex: Female
  Weight: 68 kg

DRUGS (8)
  1. REVATIO [Suspect]
     Active Substance: SILDENAFIL CITRATE
     Indication: PULMONARY ARTERIAL HYPERTENSION
     Dosage: 100 MG (5 TABLETS OF 20 MG), 4X/DAY (5 PILLS 4 TIMES A DAY)
     Route: 048
     Dates: start: 2009
  2. REMODULIN [Suspect]
     Active Substance: TREPROSTINIL
     Dosage: 99 MG, AS CONTINUOUS DRIP FOR A DAY
     Route: 058
     Dates: start: 2009
  3. ALDACTONE [Concomitant]
     Active Substance: SPIRONOLACTONE
     Dosage: 200 MG, 2X/DAY
  4. LASIX [Concomitant]
     Active Substance: FUROSEMIDE
     Dosage: 40 MG, 2X/DAY
  5. TRACLEER [Concomitant]
     Active Substance: BOSENTAN
     Dosage: 125 MG, 2X/DAY
  6. SYNTHROID [Concomitant]
     Active Substance: LEVOTHYROXINE SODIUM
     Indication: THYROID CANCER
     Dosage: 150 UG, 1X/DAY
  7. POTASSIUM [Concomitant]
     Active Substance: POTASSIUM
     Dosage: 100 MG, 2X/DAY
  8. SINGULAIR [Concomitant]
     Active Substance: MONTELUKAST SODIUM
     Dosage: 10 MG, 1X/DAY

REACTIONS (2)
  - Incorrect dose administered [Unknown]
  - Abscess [Unknown]

NARRATIVE: CASE EVENT DATE: 2009
